FAERS Safety Report 16343674 (Version 1)
Quarter: 2019Q2

REPORT INFORMATION
  Report Type: Spontaneous
  Country: IT (occurrence: IT)
  Receive Date: 20190522
  Receipt Date: 20190522
  Transmission Date: 20190711
  Serious: Yes (Other)
  Sender: FDA-Public Use
  Company Number: IT-TEVA-2019-IT-1053301

PATIENT
  Age: 39 Year
  Sex: Male

DRUGS (3)
  1. LEXOTAN [Suspect]
     Active Substance: BROMAZEPAM
     Indication: DEPRESSION
     Route: 048
     Dates: start: 20170620, end: 20180620
  2. VENLAFAXINE [Suspect]
     Active Substance: VENLAFAXINE HYDROCHLORIDE
     Indication: DEPRESSION
     Dosage: 75 MILLIGRAM DAILY;
     Route: 048
     Dates: start: 20170620, end: 20180620
  3. MODALINA [Suspect]
     Active Substance: TRIFLUOPERAZINE HYDROCHLORIDE
     Indication: DEPRESSION
     Dosage: 1 DOSAGE FORMS DAILY;
     Route: 048
     Dates: start: 20170620, end: 20180620

REACTIONS (3)
  - Skin lesion [Unknown]
  - Pruritus [Unknown]
  - Dizziness [Unknown]

NARRATIVE: CASE EVENT DATE: 20180620
